FAERS Safety Report 7301581-0 (Version None)
Quarter: 2011Q1

REPORT INFORMATION
  Report Type: 
  Country: None (occurrence: None)
  Receive Date: 20110218
  Receipt Date: 20110208
  Transmission Date: 20110831
  Serious: Yes (Disabling, Other)
  Sender: FDA-Public Use
  Company Number: BR-ELI_LILLY_AND_COMPANY-BR201009007696

PATIENT
  Sex: Female

DRUGS (1)
  1. CYMBALTA [Suspect]
     Indication: FIBROMYALGIA
     Dosage: UNK, UNKNOWN
     Route: 065

REACTIONS (12)
  - ABDOMINAL DISCOMFORT [None]
  - VOMITING [None]
  - FATIGUE [None]
  - SOMNOLENCE [None]
  - LABYRINTHITIS [None]
  - DIARRHOEA [None]
  - ABDOMINAL PAIN UPPER [None]
  - ASTHENIA [None]
  - DIZZINESS [None]
  - TREMOR [None]
  - NAUSEA [None]
  - VISION BLURRED [None]
